FAERS Safety Report 8004841-3 (Version None)
Quarter: 2011Q4

REPORT INFORMATION
  Report Type: 
  Country: None (occurrence: None)
  Receive Date: 20111223
  Receipt Date: 20111223
  Transmission Date: 20120403
  Serious: Yes (Life-Threatening, Hospitalization, Other)
  Sender: FDA-Public Use
  Company Number: None

PATIENT
  Age: 49 Year
  Sex: Female
  Weight: 104.32 kg

DRUGS (1)
  1. FEMCON FE [Suspect]
     Indication: OVARIAN CYST
     Dosage: 10 MG
     Route: 048
     Dates: start: 20110516, end: 20110711

REACTIONS (2)
  - PULMONARY THROMBOSIS [None]
  - TRAUMATIC LUNG INJURY [None]
